FAERS Safety Report 7784033-3 (Version None)
Quarter: 2011Q3

REPORT INFORMATION
  Report Type: 
  Country: None (occurrence: None)
  Receive Date: 20110928
  Receipt Date: 20110919
  Transmission Date: 20111222
  Serious: Yes (Hospitalization)
  Sender: FDA-Public Use
  Company Number: TR-MERCK-1109TUR00002

PATIENT
  Age: 46 Year
  Sex: Male

DRUGS (12)
  1. PYRAZINAMIDE [Concomitant]
     Indication: TUBERCULOSIS
     Route: 048
  2. CYCLOSPORINE [Concomitant]
     Indication: IMMUNOSUPPRESSION
     Route: 048
  3. ISONIAZID [Concomitant]
     Indication: TUBERCULOSIS
     Route: 048
  4. RIFAMPIN [Concomitant]
     Indication: TUBERCULOSIS
     Route: 048
  5. ETHAMBUTOL HYDROCHLORIDE [Concomitant]
     Indication: TUBERCULOSIS
     Route: 048
  6. CANCIDAS [Suspect]
     Indication: ASPERGILLOSIS
     Route: 041
     Dates: start: 20081101, end: 20081101
  7. CEFTAZIDIME [Concomitant]
     Indication: URINARY TRACT INFECTION
     Route: 041
  8. OFLOXACIN [Concomitant]
     Indication: TUBERCULOSIS
     Route: 048
  9. CANCIDAS [Suspect]
     Route: 041
     Dates: start: 20081101, end: 20090105
  10. GANCICLOVIR [Concomitant]
     Indication: CYTOMEGALOVIRUS INFECTION
     Route: 041
  11. CEFTAZIDIME [Concomitant]
     Indication: PSEUDOMONAS INFECTION
     Route: 041
  12. PREDNISOLONE [Concomitant]
     Indication: IMMUNOSUPPRESSION
     Route: 048

REACTIONS (1)
  - DRUG INEFFECTIVE [None]
